FAERS Safety Report 17172169 (Version 1)
Quarter: 2019Q4

REPORT INFORMATION
  Report Type: Spontaneous
  Country: FR (occurrence: FR)
  Receive Date: 20191219
  Receipt Date: 20191219
  Transmission Date: 20200122
  Serious: Yes (Other)
  Sender: FDA-Public Use
  Company Number: NVSC2019FR072397

PATIENT
  Age: 67 Year
  Sex: Male

DRUGS (3)
  1. MYCOPHENOLATE MOFETIL. [Suspect]
     Active Substance: MYCOPHENOLATE MOFETIL
     Indication: PEMPHIGUS
     Dosage: UNK
     Route: 065
  2. RITUXIMAB. [Suspect]
     Active Substance: RITUXIMAB
     Indication: PEMPHIGUS
     Dosage: 1 G, CYCLIC (DAY 0 AND DAY 15)
     Route: 065
  3. RITUXIMAB. [Suspect]
     Active Substance: RITUXIMAB
     Dosage: 1 G, CYCLIC (MAINTENANCE REGIMEN, EVERY 6 MONTHS FOR 18 MONTHS)
     Route: 065

REACTIONS (4)
  - Product use in unapproved indication [Unknown]
  - Pemphigus [Recovered/Resolved]
  - Blister [Unknown]
  - Herpes zoster [Recovered/Resolved]
